FAERS Safety Report 11439862 (Version 1)
Quarter: 2015Q3

REPORT INFORMATION
  Report Type: Spontaneous
  Country: FR (occurrence: FR)
  Receive Date: 20150901
  Receipt Date: 20150901
  Transmission Date: 20151125
  Serious: Yes (Hospitalization)
  Sender: FDA-Public Use
  Company Number: FR-ACCORD-033347

PATIENT
  Age: 83 Year
  Sex: Female

DRUGS (12)
  1. CODEINE PHOSPHATE/PARACETAMOL [Concomitant]
  2. ALPRAZOLAM. [Concomitant]
     Active Substance: ALPRAZOLAM
  3. DOCETAXEL ACCORD [Suspect]
     Active Substance: DOCETAXEL
     Indication: INVASIVE DUCTAL BREAST CARCINOMA
     Dosage: 128 MG IN A MONTH.
     Route: 042
     Dates: start: 20150609
  4. INNOHEP [Concomitant]
     Active Substance: TINZAPARIN SODIUM
     Dosage: 0.6 ML/DAY
  5. RANITIDINE [Concomitant]
     Active Substance: RANITIDINE\RANITIDINE HYDROCHLORIDE
     Indication: PREMEDICATION
  6. DEXCHLORPHENIRAMINE/DEXCHLORPHENIRAMINE MALEATE [Concomitant]
     Indication: PREMEDICATION
  7. HERCEPTIN [Suspect]
     Active Substance: TRASTUZUMAB
     Indication: INVASIVE DUCTAL BREAST CARCINOMA
     Dosage: 390 MG IN A MONTH
     Route: 042
     Dates: start: 20150609
  8. SKENAN [Concomitant]
     Active Substance: MORPHINE SULFATE
     Dosage: ONE DOSE FORM ON MORNING, LONG TERM TREATMENT
  9. PREDNISOLONE. [Concomitant]
     Active Substance: PREDNISOLONE
     Dosage: 40 MG ON DAY 1, DAY 2 AND DAY 3
     Dates: start: 20150609
  10. DEXAMETHASONE. [Concomitant]
     Active Substance: DEXAMETHASONE
     Indication: PREMEDICATION
  11. DESLORATADINE. [Concomitant]
     Active Substance: DESLORATADINE
     Dosage: 5 MG ONE DOSE FORM IN THE EVENING
  12. FENOFIBRATE. [Concomitant]
     Active Substance: FENOFIBRATE
     Dosage: 200 MG ONE DOSE FORM ON MORNING

REACTIONS (5)
  - Rash [Recovering/Resolving]
  - Palmar-plantar erythrodysaesthesia syndrome [Recovering/Resolving]
  - Hypersensitivity [Unknown]
  - Aphthous ulcer [Unknown]
  - Conjunctivitis [Recovering/Resolving]

NARRATIVE: CASE EVENT DATE: 20150703
